FAERS Safety Report 6439669-9 (Version None)
Quarter: 2009Q4

REPORT INFORMATION
  Report Type: 
  Country: None (occurrence: None)
  Receive Date: 20091113
  Receipt Date: 20091109
  Transmission Date: 20100525
  Serious: Yes (Death)
  Sender: FDA-Public Use
  Company Number: JP-ASTRAZENECA-2009SE12156

PATIENT
  Age: 84 Year
  Sex: Male

DRUGS (9)
  1. OMEPRAL TABLETS [Suspect]
     Indication: STRESS ULCER
     Route: 048
     Dates: start: 20090827, end: 20090829
  2. OMEPRAL INJECTION [Suspect]
     Indication: GASTRIC ULCER HAEMORRHAGE
     Route: 042
     Dates: start: 20090830, end: 20090909
  3. PLETAL [Suspect]
     Indication: ARTERIOSCLEROSIS OBLITERANS
     Route: 048
     Dates: start: 20090827, end: 20090830
  4. PLAVIX [Suspect]
     Indication: ACUTE MYOCARDIAL INFARCTION
     Route: 048
     Dates: start: 20090827, end: 20090904
  5. ASPIRIN [Suspect]
     Indication: ACUTE MYOCARDIAL INFARCTION
     Route: 048
     Dates: start: 20090827
  6. SIGMART [Concomitant]
     Indication: ANGINA PECTORIS
     Route: 048
     Dates: start: 20090827
  7. LIASOPHIN [Concomitant]
     Indication: PNEUMONIA
     Route: 041
     Dates: start: 20090828, end: 20090829
  8. MEROPEN [Concomitant]
     Indication: PNEUMONIA
     Route: 041
     Dates: start: 20090830, end: 20090910
  9. GASPORT [Concomitant]
     Indication: GASTRIC ULCER HAEMORRHAGE
     Route: 042
     Dates: start: 20090910, end: 20090910

REACTIONS (1)
  - THROMBOCYTOPENIA [None]
